FAERS Safety Report 16539268 (Version 1)
Quarter: 2019Q3

REPORT INFORMATION
  Report Type: Spontaneous
  Country: US (occurrence: US)
  Receive Date: 20190705
  Receipt Date: 20190705
  Transmission Date: 20191004
  Serious: Yes (Hospitalization)
  Sender: FDA-Public Use
  Company Number: None

PATIENT
  Sex: Male

DRUGS (6)
  1. GABAPENTIN. [Concomitant]
     Active Substance: GABAPENTIN
  2. IMATINIB. [Suspect]
     Active Substance: IMATINIB MESYLATE
     Indication: WHITE BLOOD CELL COUNT INCREASED
     Route: 048
     Dates: start: 20160324
  3. ZINC OXIDE, METORPOL, AGGRENOX, OXYCODONE, BREO ELLIPTA [Concomitant]
  4. LEVOTHYROXIN, GLEEVIC, FUROSEMIDE,LANTIS [Concomitant]
  5. ASPIRIN, AGGRENOX, IRON, FLOMAX, ATORVASTATIN [Concomitant]
  6. CIRPOFLOXACIN, VIT C, VIT D3, IRON, CEPHALEXIN [Concomitant]

REACTIONS (2)
  - Foot amputation [None]
  - Diabetes mellitus [None]
